FAERS Safety Report 4712795-8 (Version None)
Quarter: 2005Q3

REPORT INFORMATION
  Report Type: 
  Country: None (occurrence: None)
  Receive Date: 20050711
  Receipt Date: 20050711
  Transmission Date: 20060218
  Serious: Yes (Hospitalization)
  Sender: FDA-Public Use
  Company Number: None

PATIENT
  Sex: Female
  Weight: 89.5 kg

DRUGS (7)
  1. GLIADEL [Suspect]
     Indication: GLIOBLASTOMA MULTIFORME
     Dosage: 7.7 MG PER WAFER - MAX OF 8
     Dates: start: 20050429
  2. O6-BENZYLGUANINE [Suspect]
     Indication: GLIOBLASTOMA MULTIFORME
     Dosage: 30 MG/M2 INFUSION X 5 DAYS
     Route: 042
     Dates: start: 20050429, end: 20050503
  3. DILANTIN [Concomitant]
  4. NEURONTIN [Concomitant]
  5. CARDIZEM [Concomitant]
  6. LISINOPRIL [Concomitant]
  7. DECADRON [Concomitant]

REACTIONS (6)
  - CONVULSION [None]
  - HEADACHE [None]
  - HYPONATRAEMIA [None]
  - HYPOTENSION [None]
  - SOMNOLENCE [None]
  - UROSEPSIS [None]
